FAERS Safety Report 6967868-6 (Version None)
Quarter: 2010Q3

REPORT INFORMATION
  Report Type: 
  Country: None (occurrence: None)
  Receive Date: 20100907
  Receipt Date: 20100413
  Transmission Date: 20110219
  Serious: No
  Sender: FDA-Public Use
  Company Number: A0854790A

PATIENT
  Age: 57 Year
  Sex: Male

DRUGS (9)
  1. REQUIP [Suspect]
     Indication: RESTLESS LEGS SYNDROME
     Dosage: 1MG THREE TIMES PER DAY
     Route: 048
  2. PREDNISONE [Concomitant]
  3. COMBIVENT [Concomitant]
  4. FLOVENT [Concomitant]
  5. COUMADIN [Concomitant]
  6. LISINOPRIL [Concomitant]
  7. NEURONTIN [Concomitant]
  8. UNKNOWN STOMACH MEDICATION [Concomitant]
  9. PROTONIX [Concomitant]

REACTIONS (3)
  - BENCE JONES PROTEIN URINE [None]
  - DRUG INEFFECTIVE [None]
  - TREMOR [None]
